FAERS Safety Report 6751450-X (Version None)
Quarter: 2010Q2

REPORT INFORMATION
  Report Type: 
  Country: None (occurrence: None)
  Receive Date: 20100602
  Receipt Date: 20091207
  Transmission Date: 20101027
  Serious: Yes (Death, Hospitalization)
  Sender: FDA-Public Use
  Company Number: US-ROCHE-673940

PATIENT
  Age: 47 Year
  Sex: Female

DRUGS (5)
  1. RITUXIMAB [Suspect]
     Indication: NON-HODGKIN'S LYMPHOMA
     Dosage: 600 MG; ON DAY 1;FIVE MONTHLY CYCLES
     Route: 042
     Dates: start: 20020304, end: 20020726
  2. GANCICLOVIR SODIUM [Suspect]
     Indication: ANTI-INFECTIVE THERAPY
     Route: 042
  3. FLUDARABINE [Suspect]
     Indication: NON-HODGKIN'S LYMPHOMA
     Dosage: 40 MG; FOR FIVE DAYS EVERY CYCLE; RECEIVED FIVE MONTHLY CYCLES
     Route: 042
     Dates: start: 20020304, end: 20020726
  4. CEFTRIAXONE SODIUM [Suspect]
     Indication: ANTI-INFECTIVE THERAPY
     Route: 065
  5. AMPICILLIN [Suspect]
     Indication: ANTI-INFECTIVE THERAPY
     Route: 065

REACTIONS (1)
  - WEST NILE VIRAL INFECTION [None]
